FAERS Safety Report 17356044 (Version 2)
Quarter: 2020Q2

REPORT INFORMATION
  Report Type: Spontaneous
  Country: US (occurrence: US)
  Receive Date: 20200131
  Receipt Date: 20200407
  Transmission Date: 20200713
  Serious: Yes (Life-Threatening)
  Sender: FDA-Public Use
  Company Number: US-BIOGEN-2020BI00832043

PATIENT
  Age: 30 Year
  Sex: Male

DRUGS (1)
  1. TYSABRI [Suspect]
     Active Substance: NATALIZUMAB
     Indication: MULTIPLE SCLEROSIS
     Route: 065
     Dates: start: 20130311, end: 20140603

REACTIONS (1)
  - Immune system disorder [Recovered/Resolved]

NARRATIVE: CASE EVENT DATE: 20130311
